FAERS Safety Report 6787952-X (Version None)
Quarter: 2010Q2

REPORT INFORMATION
  Report Type: 
  Country: None (occurrence: None)
  Receive Date: 20100623
  Receipt Date: 20071212
  Transmission Date: 20101027
  Serious: Yes (Other)
  Sender: FDA-Public Use
  Company Number: US-PFIZER INC-2007105375

PATIENT
  Sex: Female
  Weight: 58 kg

DRUGS (1)
  1. DEPO-SUBQ PROVERA 104 [Suspect]
     Indication: CONTRACEPTION
     Dosage: ONCE EVERY TWELVE WEEKS
     Route: 058
     Dates: start: 20071212

REACTIONS (4)
  - ARTHRALGIA [None]
  - HYPERSENSITIVITY [None]
  - INJECTION SITE PAIN [None]
  - PAIN IN EXTREMITY [None]
